FAERS Safety Report 26081274 (Version 2)
Quarter: 2025Q4

REPORT INFORMATION
  Report Type: Report from Study
  Country: CN (occurrence: CN)
  Receive Date: 20251124
  Receipt Date: 20251231
  Transmission Date: 20260117
  Serious: Yes (Hospitalization)
  Sender: SANOFI AVENTIS
  Company Number: CN-SA-2025SA345575

PATIENT
  Age: 67 Year
  Sex: Female
  Weight: 57.4 kg

DRUGS (46)
  1. INSULIN GLARGINE [Suspect]
     Active Substance: INSULIN GLARGINE
     Indication: Type 2 diabetes mellitus
     Dosage: 24 IU, QD
     Dates: start: 20250522, end: 20250527
  2. INSULIN GLARGINE [Suspect]
     Active Substance: INSULIN GLARGINE
     Dosage: 27 U, QD
     Route: 058
     Dates: start: 20250528, end: 20250603
  3. INSULIN GLARGINE [Suspect]
     Active Substance: INSULIN GLARGINE
     Dosage: 30 U, QD
     Route: 058
     Dates: start: 20250604, end: 20250610
  4. INSULIN GLARGINE [Suspect]
     Active Substance: INSULIN GLARGINE
     Dosage: 33 U, QD
     Route: 058
     Dates: start: 20250611, end: 20250617
  5. INSULIN GLARGINE [Suspect]
     Active Substance: INSULIN GLARGINE
     Dosage: 36 U, QD
     Route: 058
     Dates: start: 20250618, end: 20250624
  6. INSULIN GLARGINE [Suspect]
     Active Substance: INSULIN GLARGINE
     Dosage: 39 U, QD
     Route: 058
     Dates: start: 20250625, end: 20250701
  7. INSULIN GLARGINE [Suspect]
     Active Substance: INSULIN GLARGINE
     Dosage: 42 U, QD
     Route: 058
     Dates: start: 20250702, end: 20250716
  8. INSULIN GLARGINE [Suspect]
     Active Substance: INSULIN GLARGINE
     Dosage: 45 U, QD
     Route: 058
     Dates: start: 20250717, end: 20251001
  9. INSULIN GLARGINE [Suspect]
     Active Substance: INSULIN GLARGINE
     Dosage: 48 U, QD
     Route: 058
     Dates: start: 20251002, end: 20251015
  10. INSULIN GLARGINE [Suspect]
     Active Substance: INSULIN GLARGINE
     Dosage: 50 U, QD
     Route: 058
     Dates: start: 20251016
  11. INSULIN ASPART [Suspect]
     Active Substance: INSULIN ASPART
     Indication: Type 2 diabetes mellitus
     Dosage: 0 U AM, 5 U PM
     Route: 058
     Dates: start: 20250522, end: 20250522
  12. INSULIN ASPART [Suspect]
     Active Substance: INSULIN ASPART
     Dosage: 5 U AM, 5 U PM
     Route: 058
     Dates: start: 20250523, end: 20250716
  13. INSULIN ASPART [Suspect]
     Active Substance: INSULIN ASPART
     Dosage: 5 U AM, 6 U PM
     Route: 058
     Dates: start: 20250717, end: 20250717
  14. INSULIN ASPART [Suspect]
     Active Substance: INSULIN ASPART
     Dosage: 6 U AM, 6 U PM
     Route: 058
     Dates: start: 20250718, end: 20250719
  15. INSULIN ASPART [Suspect]
     Active Substance: INSULIN ASPART
     Dosage: 6 U AM, 7 U PM
     Route: 058
     Dates: start: 20250720, end: 20250720
  16. INSULIN ASPART [Suspect]
     Active Substance: INSULIN ASPART
     Dosage: 7 U AM, 7 U PM
     Route: 058
     Dates: start: 20250721, end: 20250723
  17. INSULIN ASPART [Suspect]
     Active Substance: INSULIN ASPART
     Dosage: 7 U AM, 8 U PM
     Route: 058
     Dates: start: 20250724, end: 20250724
  18. INSULIN ASPART [Suspect]
     Active Substance: INSULIN ASPART
     Dosage: 8 U AM, 8 U PM
     Route: 058
     Dates: start: 20250725, end: 20250727
  19. INSULIN ASPART [Suspect]
     Active Substance: INSULIN ASPART
     Dosage: 8 U AM, 9 U PM
     Route: 058
     Dates: start: 20250728, end: 20250730
  20. INSULIN ASPART [Suspect]
     Active Substance: INSULIN ASPART
     Dosage: 9 U AM, 10 U PM
     Route: 058
     Dates: start: 20250731, end: 20250806
  21. INSULIN ASPART [Suspect]
     Active Substance: INSULIN ASPART
     Dosage: 9 U AM, 11 U PM
     Route: 058
     Dates: start: 20250807, end: 20250810
  22. INSULIN ASPART [Suspect]
     Active Substance: INSULIN ASPART
     Dosage: 10 U AM, 11 U PM
     Route: 058
     Dates: start: 20250811, end: 20250814
  23. INSULIN ASPART [Suspect]
     Active Substance: INSULIN ASPART
     Dosage: 11 U AM, 11 U PM
     Route: 058
     Dates: start: 20250815, end: 20250817
  24. INSULIN ASPART [Suspect]
     Active Substance: INSULIN ASPART
     Dosage: 12 U AM, 11 U PM
     Route: 058
     Dates: start: 20250818, end: 20250827
  25. INSULIN ASPART [Suspect]
     Active Substance: INSULIN ASPART
     Dosage: 13 U AM, 12 U PM
     Route: 058
     Dates: start: 20250828, end: 20250907
  26. INSULIN ASPART [Suspect]
     Active Substance: INSULIN ASPART
     Dosage: 13 U AM, 13 U PM
     Route: 058
     Dates: start: 20250908, end: 20250910
  27. INSULIN ASPART [Suspect]
     Active Substance: INSULIN ASPART
     Dosage: 13 U AM, 14 U PM
     Route: 058
     Dates: start: 20250911, end: 20250914
  28. INSULIN ASPART [Suspect]
     Active Substance: INSULIN ASPART
     Dosage: 13 U AM, 15 U PM
     Route: 058
     Dates: start: 20250915, end: 20250921
  29. INSULIN ASPART [Suspect]
     Active Substance: INSULIN ASPART
     Dosage: 14 U AM, 16 U PM
     Route: 058
     Dates: start: 20250922, end: 20250925
  30. INSULIN ASPART [Suspect]
     Active Substance: INSULIN ASPART
     Dosage: 14 U AM, 17 U PM
     Route: 058
     Dates: start: 20250926, end: 20250926
  31. INSULIN ASPART [Suspect]
     Active Substance: INSULIN ASPART
     Dosage: 15 U AM, 17 U PM
     Route: 058
     Dates: start: 20250927, end: 20250928
  32. INSULIN ASPART [Suspect]
     Active Substance: INSULIN ASPART
     Dosage: 15 U AM, 18 U PM
     Route: 058
     Dates: start: 20250929, end: 20251001
  33. INSULIN ASPART [Suspect]
     Active Substance: INSULIN ASPART
     Dosage: 15 U AM, 19 U PM
     Route: 058
     Dates: start: 20251002, end: 20251004
  34. INSULIN ASPART [Suspect]
     Active Substance: INSULIN ASPART
     Dosage: 16 U AM, 19 U PM
     Route: 058
     Dates: start: 20251005, end: 20251008
  35. INSULIN ASPART [Suspect]
     Active Substance: INSULIN ASPART
     Dosage: 16 U AM, 18 U PM
     Route: 058
     Dates: start: 20251009, end: 20251012
  36. INSULIN ASPART [Suspect]
     Active Substance: INSULIN ASPART
     Dosage: 17 U AM, 18 U PM
     Route: 058
     Dates: start: 20251013, end: 20251015
  37. INSULIN ASPART [Suspect]
     Active Substance: INSULIN ASPART
     Dosage: 17 U AM, 19 U PM
     Route: 058
     Dates: start: 20251016, end: 20251019
  38. INSULIN ASPART [Suspect]
     Active Substance: INSULIN ASPART
     Dosage: 18 U AM, 20 U PM
     Route: 058
     Dates: start: 20251020
  39. DAPAGLIFLOZIN [Concomitant]
     Active Substance: DAPAGLIFLOZIN
     Indication: Type 2 diabetes mellitus
     Dosage: 10.000MG QD
     Route: 048
     Dates: start: 20240307
  40. LINAGLIPTIN [Concomitant]
     Active Substance: LINAGLIPTIN
     Indication: Type 2 diabetes mellitus
     Dosage: 5.000MG QD
     Route: 048
     Dates: start: 20231228
  41. CALCIUM CARBONATE [Concomitant]
     Active Substance: CALCIUM CARBONATE
     Indication: Osteoporosis
     Dosage: 1 DF, QD
     Route: 048
     Dates: start: 20241208
  42. CALCITRIOL [Concomitant]
     Active Substance: CALCITRIOL
     Indication: Osteoporosis
     Dosage: 0.250UG QD
     Route: 048
     Dates: start: 20241208
  43. LOSARTAN POTASSIUM [Concomitant]
     Active Substance: LOSARTAN POTASSIUM
     Indication: Hypertension
     Dosage: 50.000MG QD
     Route: 048
     Dates: start: 2019
  44. AMLODIPINE BESYLATE [Concomitant]
     Active Substance: AMLODIPINE BESYLATE
     Indication: Hypertension
     Dosage: 2.5 MG, QD
     Dates: start: 20231228
  45. ATORVASTATIN CALCIUM [Concomitant]
     Active Substance: ATORVASTATIN CALCIUM
     Indication: Dyslipidaemia
     Dosage: 20 MG, QD
     Route: 048
     Dates: start: 20230116
  46. ASPIRIN [Concomitant]
     Active Substance: ASPIRIN
     Indication: Cardiovascular event prophylaxis
     Dosage: 100.000MG QD
     Route: 048
     Dates: start: 2019

REACTIONS (1)
  - Pterygium [Recovered/Resolved]

NARRATIVE: CASE EVENT DATE: 20251025
